FAERS Safety Report 19478798 (Version 2)
Quarter: 2021Q3

REPORT INFORMATION
  Report Type: Spontaneous
  Country: FR (occurrence: FR)
  Receive Date: 20210630
  Receipt Date: 20210714
  Transmission Date: 20211014
  Serious: Yes (Death, Hospitalization, Disabling, Other)
  Sender: FDA-Public Use
  Company Number: FR-ABBVIE-21K-056-3969821-00

PATIENT
  Age: 62 Year
  Sex: Female

DRUGS (4)
  1. VENETOCLAX. [Suspect]
     Active Substance: VENETOCLAX
     Indication: PRODUCT USED FOR UNKNOWN INDICATION
     Dosage: 100 MG, UNKNOWN FREQUENCY
     Route: 048
     Dates: start: 202011
  2. GILTERITINIB [Suspect]
     Active Substance: GILTERITINIB
     Indication: ACUTE MYELOID LEUKAEMIA REFRACTORY
     Dosage: 120 MG, ONCE DAILY (IN 1 INTAKE)
     Route: 048
     Dates: start: 20200910
  3. SOLUPRED [Concomitant]
     Indication: PRODUCT USED FOR UNKNOWN INDICATION
     Dosage: 10 MG, UNKNOWN FREQUNECY
  4. ISAVUCONAZOLE [Concomitant]
     Active Substance: ISAVUCONAZOLE
     Indication: PRODUCT USED FOR UNKNOWN INDICATION

REACTIONS (14)
  - Bone marrow failure [Unknown]
  - Product use issue [Unknown]
  - Blood erythropoietin increased [Unknown]
  - Acute myeloid leukaemia [Not Recovered/Not Resolved]
  - Acute myeloid leukaemia recurrent [Unknown]
  - COVID-19 [Fatal]
  - Pyoderma gangrenosum [Recovering/Resolving]
  - Differentiation syndrome [Recovered/Resolved]
  - Acute febrile neutrophilic dermatosis [Not Recovered/Not Resolved]
  - Thrombocytopenia [Not Recovered/Not Resolved]
  - Blast cell crisis [Recovered/Resolved]
  - Chloroma [Not Recovered/Not Resolved]
  - Anaemia [Not Recovered/Not Resolved]
  - Neutrophil count decreased [Unknown]

NARRATIVE: CASE EVENT DATE: 20201102
